FAERS Safety Report 7509758-6 (Version None)
Quarter: 2011Q2

REPORT INFORMATION
  Report Type: 
  Country: None (occurrence: None)
  Receive Date: 20110527
  Receipt Date: 20110516
  Transmission Date: 20111010
  Serious: Yes (Hospitalization, Other)
  Sender: FDA-Public Use
  Company Number: US-JNJFOC-20110507607

PATIENT
  Sex: Female
  Weight: 46.27 kg

DRUGS (10)
  1. TOPAMAX [Suspect]
     Route: 048
  2. TOPAMAX [Suspect]
     Route: 048
     Dates: start: 20061201
  3. TOPAMAX [Suspect]
     Route: 048
     Dates: end: 20110515
  4. TOPAMAX [Suspect]
     Route: 048
     Dates: start: 20061201
  5. TOPAMAX [Suspect]
     Route: 048
     Dates: end: 20110515
  6. TOPIRAMATE [Suspect]
     Indication: MIGRAINE
     Route: 048
     Dates: start: 20110516
  7. TOPAMAX [Suspect]
     Indication: MIGRAINE
     Route: 048
     Dates: start: 20060901, end: 20061201
  8. TOPAMAX [Suspect]
     Indication: CONVULSION
     Route: 048
     Dates: start: 20060901, end: 20061201
  9. TOPAMAX [Suspect]
     Route: 048
  10. TOPIRAMATE [Suspect]
     Indication: CONVULSION
     Route: 048
     Dates: start: 20110516

REACTIONS (18)
  - PARAESTHESIA [None]
  - SENSORY LOSS [None]
  - ABASIA [None]
  - MOVEMENT DISORDER [None]
  - TENSION HEADACHE [None]
  - MENINGIOMA [None]
  - TRANSIENT ISCHAEMIC ATTACK [None]
  - MUSCLE SPASMS [None]
  - DRUG INEFFECTIVE [None]
  - CEREBRAL HAEMORRHAGE [None]
  - ARRHYTHMIA [None]
  - MIGRAINE [None]
  - GAIT DISTURBANCE [None]
  - VASOSPASM [None]
  - NAUSEA [None]
  - CONGENITAL CEREBROVASCULAR ANOMALY [None]
  - PAIN [None]
  - BRAIN NEOPLASM [None]
